FAERS Safety Report 5938570-4 (Version None)
Quarter: 2008Q4

REPORT INFORMATION
  Report Type: 
  Country: None (occurrence: None)
  Receive Date: 20081103
  Receipt Date: 20081029
  Transmission Date: 20090506
  Serious: Yes (Death, Other)
  Sender: FDA-Public Use
  Company Number: PHHY2008FR26472

PATIENT
  Age: 61 Year
  Sex: Female
  Weight: 70 kg

DRUGS (6)
  1. EXJADE [Suspect]
     Indication: IRON OVERLOAD
     Dosage: 1400 MG, QD
     Route: 048
     Dates: start: 20070901, end: 20071201
  2. EXJADE [Suspect]
     Dosage: UNK
     Dates: end: 20080401
  3. EXJADE [Suspect]
     Dosage: UNK
     Dates: start: 20080101
  4. ARANESP [Concomitant]
     Dosage: 300 UG/DAY
  5. THALIDOMIDE [Concomitant]
     Dosage: 100 MG/DAY
  6. PLATELETS [Concomitant]

REACTIONS (2)
  - DIARRHOEA [None]
  - GASTROINTESTINAL HAEMORRHAGE [None]
